FAERS Safety Report 10776571 (Version 1)
Quarter: 2015Q1

REPORT INFORMATION
  Report Type: Spontaneous
  Country: US (occurrence: US)
  Receive Date: 20150209
  Receipt Date: 20150209
  Transmission Date: 20150721
  Serious: No
  Sender: FDA-Public Use
  Company Number: US-GLAXOSMITHKLINE-A1078237A

PATIENT

DRUGS (2)
  1. JALYN [Suspect]
     Active Substance: DUTASTERIDE\TAMSULOSIN HYDROCHLORIDE
     Route: 048
     Dates: start: 201406
  2. NASONEX [Suspect]
     Active Substance: MOMETASONE FUROATE
     Route: 065
     Dates: start: 201406

REACTIONS (3)
  - Therapeutic response unexpected [Unknown]
  - Energy increased [Not Recovered/Not Resolved]
  - Hyperhidrosis [Unknown]

NARRATIVE: CASE EVENT DATE: 201406
